FAERS Safety Report 6136050-7 (Version None)
Quarter: 2009Q1

REPORT INFORMATION
  Report Type: 
  Country: None (occurrence: None)
  Receive Date: 20090330
  Receipt Date: 20090324
  Transmission Date: 20090719
  Serious: Yes (Other)
  Sender: FDA-Public Use
  Company Number: SE-JNJFOC-20090305979

PATIENT
  Sex: Female

DRUGS (1)
  1. CONCERTA [Suspect]
     Indication: MENTAL DISORDER
     Route: 048

REACTIONS (3)
  - HYPOTENSION [None]
  - MENTAL IMPAIRMENT [None]
  - PHYSICAL DISABILITY [None]
